FAERS Safety Report 6936641-7 (Version None)
Quarter: 2010Q3

REPORT INFORMATION
  Report Type: 
  Country: None (occurrence: None)
  Receive Date: 20100823
  Receipt Date: 20100816
  Transmission Date: 20110219
  Serious: Yes (Death, Hospitalization)
  Sender: FDA-Public Use
  Company Number: US-ROCHE-721590

PATIENT
  Sex: Male
  Weight: 73.5 kg

DRUGS (18)
  1. BEVACIZUMAB [Suspect]
     Indication: NON-SMALL CELL LUNG CANCER
     Dosage: REGIMEN 1.
     Route: 042
     Dates: start: 20100329, end: 20100601
  2. BEVACIZUMAB [Suspect]
     Route: 042
     Dates: start: 20100622
  3. PEMETREXED [Suspect]
     Indication: NON-SMALL CELL LUNG CANCER
     Route: 042
     Dates: start: 20100329, end: 20100601
  4. PEMETREXED [Suspect]
     Route: 042
     Dates: start: 20100622
  5. CARBOPLATIN [Suspect]
     Indication: NON-SMALL CELL LUNG CANCER
     Route: 042
     Dates: start: 20100329, end: 20100601
  6. ZOFRAN [Concomitant]
     Dates: start: 20100405
  7. WYTENS [Concomitant]
  8. SYNTHROID [Concomitant]
  9. ALTACE [Concomitant]
  10. ASPIRIN [Concomitant]
  11. ACIPHEX [Concomitant]
  12. COREG [Concomitant]
  13. INVANZ [Concomitant]
  14. LEVAQUIN [Concomitant]
  15. ALPRAZOLAM [Concomitant]
     Dosage: DRUG NAME: ALPRAZOLAN.
     Dates: start: 20100317
  16. HYCODAN [Concomitant]
     Dates: start: 20100406
  17. HYDROCODONE BITARTRATE [Concomitant]
     Dates: start: 20100408
  18. GEMCITABINE [Concomitant]

REACTIONS (2)
  - LYMPHANGIOSIS CARCINOMATOSA [None]
  - RESPIRATORY FAILURE [None]
